FAERS Safety Report 9723270 (Version 1)
Quarter: 2013Q4

REPORT INFORMATION
  Report Type: Spontaneous
  Country: US (occurrence: US)
  Receive Date: 20131202
  Receipt Date: 20131202
  Transmission Date: 20140711
  Serious: No
  Sender: FDA-Public Use
  Company Number: US-MALLINCKRODT-T201304924

PATIENT
  Sex: Female
  Weight: 98.87 kg

DRUGS (10)
  1. HYDROMORPHONE [Suspect]
     Indication: SPINAL PAIN
     Dosage: 4 MG, TID
     Route: 048
     Dates: start: 201211
  2. PRAVASTATIN [Concomitant]
     Dosage: 40 MG, UNK
     Route: 048
  3. WARFARIN [Concomitant]
     Dosage: 5 MG, UNK
     Route: 048
  4. WARFARIN [Concomitant]
     Dosage: 2.5 MG, UNK
     Route: 048
  5. GLIPIZIDE [Concomitant]
     Dosage: 5 MG, UNK
     Route: 048
  6. CYCLOBENZAPRINE [Concomitant]
     Dosage: 10 MG, UNK
     Route: 048
  7. GABAPENTIN [Concomitant]
     Dosage: 300 MG, UNK
     Route: 048
  8. METFORMIN [Concomitant]
     Dosage: 500 MG, UNK
     Route: 048
  9. LISINOPRIL [Concomitant]
     Dosage: 20 MG, UNK
     Route: 048
  10. ESCITALOPRAM [Concomitant]
     Dosage: 20 MG, UNK
     Route: 048

REACTIONS (2)
  - Drug screen negative [Unknown]
  - Drug effect decreased [Not Recovered/Not Resolved]
